FAERS Safety Report 6699485-X (Version None)
Quarter: 2010Q2

REPORT INFORMATION
  Report Type: 
  Country: None (occurrence: None)
  Receive Date: 20100426
  Receipt Date: 20100413
  Transmission Date: 20101027
  Serious: No
  Sender: FDA-Public Use
  Company Number: 009532

PATIENT

DRUGS (2)
  1. CILOSTAZOL [Suspect]
     Indication: RUPTURED CEREBRAL ANEURYSM
     Dosage: 200 MG, DAILY DOSE
  2. FLUVASTATIN SODIUM [Concomitant]

REACTIONS (1)
  - CARDIAC FAILURE [None]
